FAERS Safety Report 11051083 (Version 1)
Quarter: 2015Q2

REPORT INFORMATION
  Report Type: Spontaneous
  Country: US (occurrence: None)
  Receive Date: 20150420
  Receipt Date: 20150420
  Transmission Date: 20150821
  Serious: Yes (Disabling)
  Sender: FDA-Public Use
  Company Number: None

PATIENT
  Age: 70 Year
  Sex: Female
  Weight: 79.38 kg

DRUGS (16)
  1. ESTROGEN [Concomitant]
     Active Substance: ESTRONE\SUS SCROFA OVARY
  2. ASA [Concomitant]
     Active Substance: ASPIRIN
  3. LEVOFLOXACIN. [Suspect]
     Active Substance: LEVOFLOXACIN
     Indication: PNEUMONIA
     Dosage: TAKEN BY MOUTH; 1 TAB X 10 DAYS
     Dates: start: 20150412, end: 20150413
  4. TEMAZEPAM. [Concomitant]
     Active Substance: TEMAZEPAM
  5. HYDROPLENISH [Concomitant]
  6. CALCIUM CITRATE [Concomitant]
     Active Substance: CALCIUM CITRATE
  7. MAGNESIUM CITRATE. [Concomitant]
     Active Substance: MAGNESIUM CITRATE
  8. GLUCOSAMINE [Concomitant]
     Active Substance: GLUCOSAMINE
  9. LEVOXYL [Concomitant]
     Active Substance: LEVOTHYROXINE SODIUM
  10. SAM E [Concomitant]
  11. COQ 10 [Concomitant]
     Active Substance: UBIDECARENONE
  12. MIRAPEX [Concomitant]
     Active Substance: PRAMIPEXOLE DIHYDROCHLORIDE
  13. GARLIC. [Concomitant]
     Active Substance: GARLIC
  14. MULTIVITAMINS [Concomitant]
     Active Substance: VITAMINS
  15. NEURONTIN [Concomitant]
     Active Substance: GABAPENTIN
  16. FISH OIL [Concomitant]
     Active Substance: FISH OIL

REACTIONS (7)
  - Arthralgia [None]
  - Drug effect decreased [None]
  - Oxygen saturation decreased [None]
  - Blood pressure increased [None]
  - Pain [None]
  - Respiratory rate increased [None]
  - Gait disturbance [None]

NARRATIVE: CASE EVENT DATE: 20150412
